FAERS Safety Report 5922959-3 (Version None)
Quarter: 2008Q4

REPORT INFORMATION
  Report Type: 
  Country: None (occurrence: None)
  Receive Date: 20081018
  Receipt Date: 20081007
  Transmission Date: 20090506
  Serious: Yes (Hospitalization)
  Sender: FDA-Public Use
  Company Number: DE-PFIZER INC-2007048244

PATIENT
  Sex: Male
  Weight: 60 kg

DRUGS (1)
  1. SU-011,248 [Suspect]
     Indication: GERM CELL CANCER
     Route: 048
     Dates: start: 20070425

REACTIONS (1)
  - PNEUMONIA [None]
